FAERS Safety Report 24303560 (Version 1)
Quarter: 2024Q3

REPORT INFORMATION
  Report Type: Spontaneous
  Country: US (occurrence: None)
  Receive Date: 20240909
  Receipt Date: 20240909
  Transmission Date: 20241017
  Serious: Yes (Hospitalization)
  Sender: Public
  Company Number: None

PATIENT
  Age: 67 Year
  Sex: Female
  Weight: 90 kg

DRUGS (2)
  1. TEPEZZA [Suspect]
     Active Substance: TEPROTUMUMAB-TRBW
     Indication: Endocrine ophthalmopathy
     Dosage: OTHER FREQUENCY : 8 DOSES TRIWEEKLY;?
     Route: 042
  2. ARMOUR THYROID [Concomitant]
     Active Substance: THYROID, PORCINE

REACTIONS (7)
  - Anxiety [None]
  - Confusional state [None]
  - Abnormal behaviour [None]
  - Paranoia [None]
  - Psychomotor hyperactivity [None]
  - Logorrhoea [None]
  - Thinking abnormal [None]

NARRATIVE: CASE EVENT DATE: 20240903
